FAERS Safety Report 7400916-8 (Version None)
Quarter: 2011Q2

REPORT INFORMATION
  Report Type: 
  Country: None (occurrence: None)
  Receive Date: 20110407
  Receipt Date: 20110330
  Transmission Date: 20111010
  Serious: Yes (Hospitalization)
  Sender: FDA-Public Use
  Company Number: JP-B.I. PHARMACEUTICALS,INC./RIDGEFIELD-2011-BP-07842NB

PATIENT
  Sex: Female
  Weight: 49 kg

DRUGS (12)
  1. ESCELASE [Concomitant]
     Dosage: 3DF
     Route: 048
  2. URITOS [Concomitant]
     Dosage: 0.1 MG
     Route: 048
  3. KETOBUN [Suspect]
     Dosage: 100 MG
     Route: 048
  4. HEAVY MAGNESIUM OXIDE [Concomitant]
     Dosage: 1 G
     Route: 048
  5. KETOPROFEN [Concomitant]
     Dosage: 1DF
     Route: 065
  6. CONIEL [Suspect]
     Indication: HYPERTENSION
     Dosage: 8 MG
     Route: 048
  7. PANTOSIN [Concomitant]
     Dosage: 3 G
     Route: 048
  8. IRBETAN [Concomitant]
     Indication: HYPERTENSION
     Dosage: 100 MG
  9. MICOMBI COMBINATION [Suspect]
     Indication: HYPERTENSION
     Dosage: TELMISARTAN 40 MG/HYDROCHLOROTHIAZIDE 12.5 MG
     Route: 048
     Dates: start: 20100913, end: 20101122
  10. DOXAZOSIN MESYLATE [Suspect]
     Indication: HYPERTENSION
     Dosage: 1 MG
     Route: 048
     Dates: start: 20101108
  11. STOMARCON [Concomitant]
     Dosage: 10 MG
     Route: 048
  12. METHYLCOBAL [Concomitant]
     Dosage: 1500 MCG
     Route: 048

REACTIONS (3)
  - RENAL IMPAIRMENT [None]
  - SICK SINUS SYNDROME [None]
  - HYPERTENSION [None]
